FAERS Safety Report 4523110-7 (Version None)
Quarter: 2004Q4

REPORT INFORMATION
  Report Type: 
  Country: None (occurrence: None)
  Receive Date: 20041208
  Receipt Date: 20041125
  Transmission Date: 20050328
  Serious: Yes (Other)
  Sender: FDA-Public Use
  Company Number: 2004100140

PATIENT
  Age: 52 Year
  Sex: Female

DRUGS (5)
  1. ZYVOX [Suspect]
     Indication: WOUND INFECTION
     Dosage: 600 MG, ORAL
     Route: 048
     Dates: start: 20030501
  2. ROFECOXIB [Concomitant]
  3. MORPHINE SULFATE [Concomitant]
  4. CIPROFLOXACIN HCL [Concomitant]
  5. CLAVULIN            (AMOXICILLIN TRIHYDRATE, CLAVULANATE POTASSIUM) [Concomitant]

REACTIONS (12)
  - ANISOCYTOSIS [None]
  - BEDRIDDEN [None]
  - BLOOD DISORDER [None]
  - ERYTHROPOIESIS ABNORMAL [None]
  - HEADACHE [None]
  - HYPERTENSION [None]
  - MYOCARDIAL INFARCTION [None]
  - NASAL CONGESTION [None]
  - POIKILOCYTOSIS [None]
  - POLYCHROMASIA [None]
  - PULMONARY EMBOLISM [None]
  - UNEVALUABLE EVENT [None]
